FAERS Safety Report 4746333-0 (Version None)
Quarter: 2005Q3

REPORT INFORMATION
  Report Type: 
  Country: None (occurrence: None)
  Receive Date: 20050815
  Receipt Date: 20050803
  Transmission Date: 20060218
  Serious: Yes (Hospitalization)
  Sender: FDA-Public Use
  Company Number: CA_050708518

PATIENT
  Age: 48 Year
  Sex: Male

DRUGS (1)
  1. STRATTERA [Suspect]
     Dosage: 40 MG
     Dates: start: 20050503

REACTIONS (2)
  - BILE DUCT STONE [None]
  - NEPHROLITHIASIS [None]
